FAERS Safety Report 4719896-9 (Version None)
Quarter: 2005Q3

REPORT INFORMATION
  Report Type: 
  Country: None (occurrence: None)
  Receive Date: 20050721
  Receipt Date: 20050110
  Transmission Date: 20060218
  Serious: No
  Sender: FDA-Public Use
  Company Number: US-GLAXOSMITHKLINE-A0540059A

PATIENT
  Age: 74 Year
  Sex: Female

DRUGS (8)
  1. AVANDIA [Suspect]
     Dosage: 8MG PER DAY
     Route: 048
     Dates: start: 20041231
  2. LOTREL [Concomitant]
  3. ATENOLOL [Concomitant]
  4. GLUCOTROL [Concomitant]
  5. LEVOXYL [Concomitant]
  6. CHLORTHALIDONE [Concomitant]
  7. PRAVACHOL [Concomitant]
  8. GLUCOTROL XL [Concomitant]

REACTIONS (3)
  - DIZZINESS [None]
  - HYPOTENSION [None]
  - NAUSEA [None]
